FAERS Safety Report 11128066 (Version 1)
Quarter: 2015Q2

REPORT INFORMATION
  Report Type: Spontaneous
  Country: FI (occurrence: FI)
  Receive Date: 20150521
  Receipt Date: 20150521
  Transmission Date: 20150821
  Serious: Yes (Hospitalization, Other)
  Sender: FDA-Public Use
  Company Number: FI-AMGEN-FINSP2015047931

PATIENT
  Age: 39 Year
  Sex: Male

DRUGS (2)
  1. VECTIBIX [Suspect]
     Active Substance: PANITUMUMAB
     Indication: COLORECTAL CANCER
     Dosage: UNK
     Route: 065
     Dates: start: 20100611, end: 20101111
  2. GEMZAR [Concomitant]
     Active Substance: GEMCITABINE HYDROCHLORIDE
     Indication: COLORECTAL CANCER
     Dosage: UNK
     Dates: start: 20100826

REACTIONS (26)
  - Malignant neoplasm progression [Unknown]
  - Laziness [Unknown]
  - Off label use [Unknown]
  - Fatigue [Unknown]
  - Feeling abnormal [Unknown]
  - Platelet count decreased [Unknown]
  - Weight decreased [Unknown]
  - Lymphadenopathy [Unknown]
  - Somnolence [Unknown]
  - Influenza [Unknown]
  - Rash [Unknown]
  - Metastases to lung [Unknown]
  - Full blood count decreased [Recovered/Resolved]
  - Haemoglobin decreased [Recovered/Resolved]
  - Abdominal discomfort [Unknown]
  - Drug effect incomplete [Unknown]
  - Drug intolerance [Unknown]
  - Decreased appetite [Recovered/Resolved]
  - Nausea [Unknown]
  - Metastases to liver [Unknown]
  - Cognitive disorder [Unknown]
  - Gastroenteritis viral [Unknown]
  - Anxiety [Unknown]
  - Pharyngitis [Unknown]
  - White blood cell count decreased [Recovered/Resolved]
  - Malaise [Unknown]

NARRATIVE: CASE EVENT DATE: 201006
